FAERS Safety Report 24799850 (Version 1)
Quarter: 2025Q1

REPORT INFORMATION
  Report Type: Spontaneous
  Country: GB (occurrence: GB)
  Receive Date: 20250102
  Receipt Date: 20250102
  Transmission Date: 20250409
  Serious: Yes (Death, Other)
  Sender: B BRAUN
  Company Number: GB-B.Braun Medical Inc.-2168202

PATIENT
  Age: 83 Year
  Sex: Male
  Weight: 70 kg

DRUGS (2)
  1. ACETAMINOPHEN [Suspect]
     Active Substance: ACETAMINOPHEN
     Dates: start: 20241009, end: 20241110
  2. FLUCLOXACILLIN [Suspect]
     Active Substance: FLUCLOXACILLIN

REACTIONS (1)
  - Pyroglutamic acidosis [Fatal]
